FAERS Safety Report 5195165-0 (Version None)
Quarter: 2006Q4

REPORT INFORMATION
  Report Type: 
  Country: None (occurrence: None)
  Receive Date: 20061229
  Receipt Date: 20061227
  Transmission Date: 20070319
  Serious: Yes (Other)
  Sender: FDA-Public Use
  Company Number: NG-BOEHRINGER INGELHEIM PHARMACEUTICALS, INC.-2006-DE-06884GD

PATIENT

DRUGS (2)
  1. NEVIRAPINE [Suspect]
     Indication: PROPHYLAXIS
     Route: 015
  2. NEVIRAPINE [Suspect]
     Indication: HUMAN IMMUNODEFICIENCY VIRUS TRANSMISSION

REACTIONS (3)
  - DRUG EXPOSURE DURING PREGNANCY [None]
  - HIV TEST POSITIVE [None]
  - MATERNAL CONDITION AFFECTING FOETUS [None]
